FAERS Safety Report 6237370-8 (Version None)
Quarter: 2009Q2

REPORT INFORMATION
  Report Type: 
  Country: None (occurrence: None)
  Receive Date: 20090619
  Receipt Date: 20090615
  Transmission Date: 20091009
  Serious: Yes (Death)
  Sender: FDA-Public Use
  Company Number: US-ROCHE-638300

PATIENT
  Sex: Male

DRUGS (5)
  1. VALIUM [Suspect]
     Indication: DRUG USE FOR UNKNOWN INDICATION
     Route: 065
  2. RESTORIL [Suspect]
     Indication: DRUG USE FOR UNKNOWN INDICATION
     Route: 065
  3. OPANA ER [Suspect]
     Route: 065
     Dates: start: 20081229
  4. OPANA ER [Suspect]
     Dosage: DOSE INCREASED
     Route: 065
  5. LORTAB [Suspect]
     Indication: DRUG USE FOR UNKNOWN INDICATION
     Dosage: DOSE AS: 10MG/500 MG
     Route: 065

REACTIONS (1)
  - DEATH [None]
